FAERS Safety Report 8506599-8 (Version None)
Quarter: 2012Q3

REPORT INFORMATION
  Report Type: 
  Country: None (occurrence: None)
  Receive Date: 20120706
  Receipt Date: 20120706
  Transmission Date: 20120928
  Serious: Yes (Death)
  Sender: FDA-Public Use
  Company Number: None

PATIENT
  Sex: Female
  Weight: 53.0709 kg

DRUGS (4)
  1. STELARA [Suspect]
     Indication: PYODERMA GANGRENOSUM
     Dosage: 45 MG, Q12 WK
     Dates: start: 20110301, end: 20111001
  2. HUMIRA [Suspect]
     Indication: PYODERMA GANGRENOSUM
     Dosage: 40 MG, Q2WK, 17 (SEVENTEEN) INJECTIONS
     Dates: start: 20110301, end: 20111001
  3. HUMIRA [Suspect]
     Indication: PYODERMA GANGRENOSUM
     Dosage: 40 MG, Q2WK, 17 (SEVENTEEN) INJECTIONS
     Dates: start: 20111101, end: 20120701
  4. RAMICADE [Concomitant]

REACTIONS (2)
  - GASTROINTESTINAL DISORDER [None]
  - COLON CANCER METASTATIC [None]
